FAERS Safety Report 6152079-7 (Version None)
Quarter: 2009Q2

REPORT INFORMATION
  Report Type: 
  Country: None (occurrence: None)
  Receive Date: 20090409
  Receipt Date: 20090409
  Transmission Date: 20091009
  Serious: Yes (Other)
  Sender: FDA-Public Use
  Company Number: None

PATIENT
  Age: 11 Year
  Sex: Male
  Weight: 59.4 kg

DRUGS (1)
  1. MEMANTINE HCL [Suspect]
     Indication: AUTISM
     Dosage: 5 MG BID PO
     Route: 048
     Dates: start: 20090212, end: 20090305

REACTIONS (2)
  - CONVULSION [None]
  - TREMOR [None]
